FAERS Safety Report 5305723-8 (Version None)
Quarter: 2007Q2

REPORT INFORMATION
  Report Type: 
  Country: None (occurrence: None)
  Receive Date: 20070424
  Receipt Date: 20070417
  Transmission Date: 20071010
  Serious: Yes (Hospitalization)
  Sender: FDA-Public Use
  Company Number: GB-ALLERGAN-0703874US

PATIENT
  Age: 76 Year
  Sex: Male

DRUGS (4)
  1. ALPHAGAN[R] 0.2% [Suspect]
     Indication: OPEN ANGLE GLAUCOMA
     Route: 047
  2. TIMOLOL MALEATE SOL UNSPECIFID [Suspect]
     Indication: DRUG USE FOR UNKNOWN INDICATION
     Route: 047
  3. TRUSOPT [Suspect]
     Indication: DRUG USE FOR UNKNOWN INDICATION
     Route: 047
  4. XALATAN [Suspect]
     Indication: OPEN ANGLE GLAUCOMA
     Route: 047

REACTIONS (1)
  - ECTROPION [None]
